FAERS Safety Report 5164229-X (Version None)
Quarter: 2006Q4

REPORT INFORMATION
  Report Type: 
  Country: None (occurrence: None)
  Receive Date: 20061204
  Receipt Date: 20061124
  Transmission Date: 20070319
  Serious: Yes (Hospitalization)
  Sender: FDA-Public Use
  Company Number: GB-ABBOTT-06P-167-0351993-00

PATIENT
  Age: 15 Year
  Sex: Male

DRUGS (3)
  1. EPILIM CHRONO TABLETS [Suspect]
     Indication: MOOD SWINGS
     Route: 048
     Dates: start: 20060904, end: 20061014
  2. QUETIAPINE FUMARATE [Suspect]
     Indication: HYPOMANIA
     Route: 048
     Dates: start: 20060718
  3. FLUOXETINE [Concomitant]
     Indication: DEPRESSION
     Route: 048
     Dates: start: 20060501, end: 20061013

REACTIONS (2)
  - DEEP VEIN THROMBOSIS [None]
  - PROTEIN TOTAL DECREASED [None]
